FAERS Safety Report 24161951 (Version 1)
Quarter: 2024Q3

REPORT INFORMATION
  Report Type: Other
  Country: IN (occurrence: IN)
  Receive Date: 20240801
  Receipt Date: 20240801
  Transmission Date: 20241017
  Serious: Yes (Hospitalization, Other)
  Sender: BIONPHARMA
  Company Number: IN-Bion-013563

PATIENT
  Age: 63 Year
  Sex: Male

DRUGS (2)
  1. VALPROIC ACID [Suspect]
     Active Substance: VALPROIC ACID
     Indication: Mania
  2. LITHIUM [Concomitant]
     Active Substance: LITHIUM
     Indication: Mania

REACTIONS (5)
  - Hyperammonaemia [Unknown]
  - Neuroleptic malignant syndrome [Unknown]
  - Cerebellar atrophy [Unknown]
  - Drug ineffective [Not Recovered/Not Resolved]
  - Delirium [Unknown]
